FAERS Safety Report 12401919 (Version 1)
Quarter: 2016Q2

REPORT INFORMATION
  Report Type: Spontaneous
  Country: US (occurrence: US)
  Receive Date: 20160525
  Receipt Date: 20160525
  Transmission Date: 20160815
  Serious: No
  Sender: FDA-Public Use
  Company Number: US-PFIZER INC-2016251513

PATIENT
  Sex: Female

DRUGS (2)
  1. AMLODIPINE BESILATE [Suspect]
     Active Substance: AMLODIPINE BESYLATE
     Indication: HYPERTENSION
     Dosage: 5MG TABLET ONE IN THE MORNING AND ONE AT NIGHT
  2. AMLODIPINE BESILATE [Suspect]
     Active Substance: AMLODIPINE BESYLATE
     Dosage: INCREASED THE DOSE AND TOOK TWO 5MG TABLETS IN THE MORNING AND ONE 5MG TABLET AT NIGHT

REACTIONS (3)
  - Blood pressure increased [Unknown]
  - Incorrect dose administered [Unknown]
  - Orthostatic hypotension [Unknown]
